FAERS Safety Report 13915260 (Version 6)
Quarter: 2018Q1

REPORT INFORMATION
  Report Type: Report from Study
  Country: PA (occurrence: PA)
  Receive Date: 20170829
  Receipt Date: 20180329
  Transmission Date: 20180508
  Serious: Yes (Hospitalization)
  Sender: FDA-Public Use
  Company Number: PA-ROCHE-1982039

PATIENT
  Age: 31 Year
  Sex: Female
  Weight: 62 kg

DRUGS (10)
  1. PLACEBO [Suspect]
     Active Substance: UNSPECIFIED INGREDIENT
     Indication: LUPUS NEPHRITIS
     Dosage: FREQUENCY AS PER PROTOCOL: ON DAYS 1, 15, 168, AND 182 ?DATE OF MOST RECENT DOSE OF PLACEBO PRIOR TO
     Route: 042
     Dates: start: 20170524
  2. PLACEBO [Suspect]
     Active Substance: UNSPECIFIED INGREDIENT
     Indication: LUPUS NEPHRITIS
     Dosage: FREQUENCY: ONCE DAILY FOR UP TO 3 DAYS (AS PER PROTOCOL)?DATE OF MOST RECENT DOSE OF PLACEBO PRIOR T
     Route: 042
     Dates: start: 20170524
  3. PREDNISONE. [Concomitant]
     Active Substance: PREDNISONE
     Indication: LUPUS NEPHRITIS
     Route: 048
     Dates: start: 20170713, end: 20170727
  4. IRBESARTAN. [Concomitant]
     Active Substance: IRBESARTAN
     Route: 048
     Dates: start: 20170420
  5. FUROSEMIDE. [Concomitant]
     Active Substance: FUROSEMIDE
     Route: 048
     Dates: start: 20170607
  6. MYCOPHENOLATE MOFETIL. [Suspect]
     Active Substance: MYCOPHENOLATE MOFETIL
     Indication: LUPUS NEPHRITIS
     Dosage: DATE OF MOST RECENT DOSE OF MYCOPHENOLATE MOFETIL/MYCOPHENOLIC ACID PRIOR TO AE ONSET 17/AUG/2017?DO
     Route: 048
     Dates: start: 20170420
  7. AMLODIPINE [Concomitant]
     Active Substance: AMLODIPINE BESYLATE
     Route: 048
     Dates: start: 20170420
  8. HIDROXICLOROQUINA, SULFATO DE [Concomitant]
     Indication: LUPUS NEPHRITIS
     Route: 048
     Dates: start: 20170324
  9. PREDNISONE. [Concomitant]
     Active Substance: PREDNISONE
     Route: 048
     Dates: start: 20170728, end: 20170810
  10. PREDNISONE. [Concomitant]
     Active Substance: PREDNISONE
     Route: 048
     Dates: start: 20170811

REACTIONS (1)
  - Meningitis cryptococcal [Recovered/Resolved]

NARRATIVE: CASE EVENT DATE: 20170818
